FAERS Safety Report 5769033-7 (Version None)
Quarter: 2008Q2

REPORT INFORMATION
  Report Type: 
  Country: None (occurrence: None)
  Receive Date: 20080612
  Receipt Date: 20080318
  Transmission Date: 20081010
  Serious: No
  Sender: FDA-Public Use
  Company Number: US-ABBOTT-08P-163-0443183-00

PATIENT
  Sex: Female
  Weight: 88.53 kg

DRUGS (7)
  1. HUMIRA [Suspect]
     Indication: ANKYLOSING SPONDYLITIS
     Route: 058
     Dates: start: 20080213
  2. AZITHROMYCIN [Concomitant]
     Indication: CHILLS
     Route: 048
     Dates: start: 20080312, end: 20080316
  3. AZITHROMYCIN [Concomitant]
     Indication: PYREXIA
  4. AZITHROMYCIN [Concomitant]
     Indication: COUGH
  5. KARVEA HCT [Concomitant]
     Indication: BLOOD PRESSURE
     Route: 048
  6. PROTONIC [Concomitant]
     Indication: GASTROOESOPHAGEAL REFLUX DISEASE
     Route: 048
  7. FLUNILDAC [Concomitant]
     Indication: DRUG USE FOR UNKNOWN INDICATION
     Route: 048

REACTIONS (5)
  - CHILLS [None]
  - COUGH [None]
  - DRUG DOSE OMISSION [None]
  - NASOPHARYNGITIS [None]
  - PYREXIA [None]
